FAERS Safety Report 6687280-7 (Version None)
Quarter: 2010Q2

REPORT INFORMATION
  Report Type: 
  Country: None (occurrence: None)
  Receive Date: 20100419
  Receipt Date: 20100409
  Transmission Date: 20101027
  Serious: Yes (Other)
  Sender: FDA-Public Use
  Company Number: GR-AMGEN-US405851

PATIENT
  Age: 23 Year
  Sex: Female
  Weight: 92 kg

DRUGS (6)
  1. ENBREL [Suspect]
     Indication: RHEUMATOID ARTHRITIS
     Route: 058
     Dates: start: 20090211, end: 20090917
  2. METHOTREXATE [Suspect]
     Indication: RHEUMATOID ARTHRITIS
     Dosage: UNSPECIFIED
     Route: 048
     Dates: start: 20090406, end: 20090917
  3. IDEOS [Concomitant]
     Indication: OSTEOPOROSIS
     Dosage: UNSPECIFIED
     Route: 065
     Dates: start: 20081120
  4. PREZOLON [Concomitant]
     Indication: RHEUMATOID ARTHRITIS
     Dosage: UNSPECIFIED
     Route: 065
     Dates: start: 20090211
  5. KERLONE [Concomitant]
     Indication: HYPERTENSION
     Dosage: UNSPECIFIED
     Route: 065
     Dates: start: 20081130
  6. NEORAL [Concomitant]
     Indication: RHEUMATOID ARTHRITIS
     Dosage: UNSPECIFIED
     Route: 065
     Dates: start: 20081009

REACTIONS (1)
  - ALOPECIA UNIVERSALIS [None]
